FAERS Safety Report 18704755 (Version 2)
Quarter: 2021Q1

REPORT INFORMATION
  Report Type: Spontaneous
  Country: IT (occurrence: IT)
  Receive Date: 20210106
  Receipt Date: 20210121
  Transmission Date: 20210419
  Serious: Yes (Disabling)
  Sender: FDA-Public Use
  Company Number: IT-SUN PHARMACEUTICAL INDUSTRIES LTD-2020RR-274172

PATIENT
  Age: 29 Year
  Sex: Male
  Weight: 76 kg

DRUGS (2)
  1. OLANZAPINA SUN [Suspect]
     Active Substance: OLANZAPINE
     Indication: AFFECT LABILITY
     Dosage: 2.5 MILLIGRAM, DAILY
     Route: 048
     Dates: start: 20191220, end: 20200131
  2. OLANZAPINA TEVA [Suspect]
     Active Substance: OLANZAPINE
     Indication: AFFECT LABILITY
     Dosage: 2.5 MILLIGRAM, DAILY
     Route: 048
     Dates: start: 20200101, end: 20200405

REACTIONS (4)
  - Increased appetite [Recovered/Resolved with Sequelae]
  - Weight increased [Recovered/Resolved with Sequelae]
  - Stupor [Recovered/Resolved with Sequelae]
  - Fatigue [Recovered/Resolved with Sequelae]

NARRATIVE: CASE EVENT DATE: 20200101
